FAERS Safety Report 18915868 (Version 1)
Quarter: 2021Q1

REPORT INFORMATION
  Report Type: Report from Study
  Country: US (occurrence: US)
  Receive Date: 20210219
  Receipt Date: 20210219
  Transmission Date: 20210420
  Serious: Yes (Hospitalization)
  Sender: FDA-Public Use
  Company Number: US-PFIZER INC-2021124126

PATIENT
  Age: 63 Year
  Sex: Male
  Weight: 114.9 kg

DRUGS (2)
  1. CISPLATIN. [Suspect]
     Active Substance: CISPLATIN
     Dosage: 60 MG/M2/DOSE, MONTHLY
     Dates: start: 20181105
  2. IBRANCE [Suspect]
     Active Substance: PALBOCICLIB
     Dosage: 125 MG, DAILY
     Dates: start: 20181105, end: 20181105

REACTIONS (2)
  - Blood creatinine increased [Not Recovered/Not Resolved]
  - Hypotension [Recovering/Resolving]
